FAERS Safety Report 7944075-1 (Version None)
Quarter: 2011Q4

REPORT INFORMATION
  Report Type: 
  Country: None (occurrence: None)
  Receive Date: 20111128
  Receipt Date: 20111117
  Transmission Date: 20120403
  Serious: Yes (Hospitalization)
  Sender: FDA-Public Use
  Company Number: BR-ASTRAZENECA-2011SE70720

PATIENT
  Age: 18 Year
  Sex: Male

DRUGS (1)
  1. ATACAND HCT [Suspect]
     Dosage: 16+12.5 MG
     Route: 048

REACTIONS (1)
  - APPENDICITIS [None]
